FAERS Safety Report 6397328-5 (Version None)
Quarter: 2009Q4

REPORT INFORMATION
  Report Type: 
  Country: None (occurrence: None)
  Receive Date: 20091012
  Receipt Date: 20091002
  Transmission Date: 20100525
  Serious: Yes (Hospitalization, Other)
  Sender: FDA-Public Use
  Company Number: FR-TEVA-197232ISR

PATIENT
  Sex: Female
  Weight: 53 kg

DRUGS (2)
  1. COPAXONE [Suspect]
     Indication: MULTIPLE SCLEROSIS
     Route: 058
     Dates: start: 20090420, end: 20090420
  2. MARVELON [Concomitant]
     Indication: CONTRACEPTIVE CAP
     Route: 048
     Dates: start: 20080301, end: 20090425

REACTIONS (6)
  - ACUTE HEPATIC FAILURE [None]
  - HEPATITIS [None]
  - INJECTION SITE ERYTHEMA [None]
  - INJECTION SITE PAIN [None]
  - INJECTION SITE RASH [None]
  - JAUNDICE [None]
